FAERS Safety Report 9049011 (Version 1)
Quarter: 2013Q1

REPORT INFORMATION
  Report Type: Spontaneous
  Country: GB (occurrence: None)
  Receive Date: 20130117
  Receipt Date: 20130117
  Transmission Date: 20140127
  Serious: Yes (Hospitalization, Other)
  Sender: FDA-Public Use
  Company Number: DSA_61885_2013

PATIENT
  Age: 31 Year
  Sex: Female

DRUGS (2)
  1. METRONIDAZOLE (METRONIDAZOLE) [Suspect]
     Indication: PROPHYLAXIS
     Dates: start: 20120928, end: 20121003
  2. AUGMENTIN /00852501/ [Concomitant]

REACTIONS (5)
  - Oral candidiasis [None]
  - Asthenia [None]
  - Malaise [None]
  - Nausea [None]
  - Dizziness [None]
